FAERS Safety Report 7359899-1 (Version None)
Quarter: 2011Q1

REPORT INFORMATION
  Report Type: 
  Country: None (occurrence: None)
  Receive Date: 20110317
  Receipt Date: 20110308
  Transmission Date: 20110831
  Serious: Yes (Other)
  Sender: FDA-Public Use
  Company Number: US-ASTRAZENECA-2009SE23717

PATIENT
  Age: 71 Year
  Sex: Female
  Weight: 66.7 kg

DRUGS (2)
  1. IRESSA [Suspect]
     Indication: LUNG NEOPLASM MALIGNANT
     Route: 048
     Dates: start: 20040101
  2. TOPROL-XL [Concomitant]

REACTIONS (4)
  - STAPHYLOCOCCAL INFECTION [None]
  - LUNG CARCINOMA CELL TYPE UNSPECIFIED RECURRENT [None]
  - DIARRHOEA [None]
  - RASH [None]
